FAERS Safety Report 5575740-1 (Version None)
Quarter: 2007Q4

REPORT INFORMATION
  Report Type: 
  Country: None (occurrence: None)
  Receive Date: 20071226
  Receipt Date: 20071211
  Transmission Date: 20080405
  Serious: Yes (Other)
  Sender: FDA-Public Use
  Company Number: 021784

PATIENT
  Age: 15 Year
  Sex: Female

DRUGS (1)
  1. NORDETTE-28 [Suspect]
     Indication: ORAL CONTRACEPTION
     Dosage: ORAL
     Route: 048

REACTIONS (7)
  - CEREBRAL VENOUS THROMBOSIS [None]
  - COLOUR BLINDNESS [None]
  - INTRACRANIAL VENOUS SINUS THROMBOSIS [None]
  - JUGULAR VEIN THROMBOSIS [None]
  - NECK PAIN [None]
  - PAPILLOEDEMA [None]
  - VISUAL ACUITY REDUCED [None]
